FAERS Safety Report 15276493 (Version 1)
Quarter: 2018Q3

REPORT INFORMATION
  Report Type: Spontaneous
  Country: CA (occurrence: US)
  Receive Date: 20180814
  Receipt Date: 20180814
  Transmission Date: 20181010
  Serious: No
  Sender: FDA-Public Use
  Company Number: CA-MYLANLABS-2018M1055332

PATIENT
  Age: 68 Year
  Sex: Female
  Weight: 104 kg

DRUGS (1)
  1. MYLAN?PANTOPRAZOLE T [Suspect]
     Active Substance: PANTOPRAZOLE
     Indication: PRODUCT USED FOR UNKNOWN INDICATION
     Dosage: 40 MG, QD

REACTIONS (3)
  - Malaise [Not Recovered/Not Resolved]
  - Overweight [Not Recovered/Not Resolved]
  - Drug ineffective [Not Recovered/Not Resolved]

NARRATIVE: CASE EVENT DATE: 20180604
